FAERS Safety Report 11250795 (Version 1)
Quarter: 2015Q3

REPORT INFORMATION
  Report Type: Spontaneous
  Country: US (occurrence: US)
  Receive Date: 20150708
  Receipt Date: 20150708
  Transmission Date: 20151125
  Serious: Yes (Other)
  Sender: FDA-Public Use
  Company Number: US-ELI_LILLY_AND_COMPANY-US201105000601

PATIENT
  Age: 57 Year
  Sex: Female

DRUGS (2)
  1. ALIMTA [Suspect]
     Active Substance: PEMETREXED DISODIUM
     Indication: OVARIAN CANCER
  2. AVASTIN [Concomitant]
     Active Substance: BEVACIZUMAB
     Dosage: 1365 MG, EVERY 3WEEKS
     Dates: start: 20101216

REACTIONS (2)
  - Malignant neoplasm progression [Unknown]
  - Off label use [Unknown]
